FAERS Safety Report 6779002-6 (Version None)
Quarter: 2010Q2

REPORT INFORMATION
  Report Type: 
  Country: None (occurrence: None)
  Receive Date: 20100618
  Receipt Date: 20100610
  Transmission Date: 20101027
  Serious: Yes (Hospitalization)
  Sender: FDA-Public Use
  Company Number: FR-PFIZER INC-2010073367

PATIENT
  Age: 78 Year
  Sex: Male

DRUGS (3)
  1. SOLU-MEDROL [Suspect]
     Indication: PREMEDICATION
     Dosage: 60 MG, 1X/DAY
     Route: 042
     Dates: start: 20100526, end: 20100526
  2. RANITIDINE HCL [Suspect]
     Indication: PREMEDICATION
     Dosage: 0.5 DF, 1X/DAY
     Route: 042
     Dates: start: 20100526, end: 20100526
  3. POLARAMINE [Suspect]
     Indication: PREMEDICATION
     Dosage: 0.5 DF, 1X/DAY
     Route: 042
     Dates: start: 20100526, end: 20100526

REACTIONS (1)
  - MALAISE [None]
